FAERS Safety Report 6159398-9 (Version None)
Quarter: 2009Q2

REPORT INFORMATION
  Report Type: 
  Country: None (occurrence: None)
  Receive Date: 20090417
  Receipt Date: 20090409
  Transmission Date: 20091009
  Serious: Yes (Other)
  Sender: FDA-Public Use
  Company Number: PHHY2009JP13651

PATIENT
  Sex: Male

DRUGS (4)
  1. ZOMETA [Suspect]
     Indication: MULTIPLE MYELOMA
     Route: 042
  2. DECADRON [Suspect]
     Indication: BONE MARROW FAILURE
     Dosage: UNK
     Route: 065
  3. MELPHALAN [Concomitant]
     Indication: MULTIPLE MYELOMA
  4. PREDNISOLONE [Concomitant]
     Indication: MULTIPLE MYELOMA

REACTIONS (2)
  - OSTEONECROSIS [None]
  - TOOTHACHE [None]
